FAERS Safety Report 11083733 (Version 1)
Quarter: 2015Q2

REPORT INFORMATION
  Report Type: Other
  Country: DE (occurrence: DE)
  Receive Date: 20150501
  Receipt Date: 20150501
  Transmission Date: 20150821
  Serious: Yes (Hospitalization)
  Sender: FDA-Public Use
  Company Number: DE-MYLANLABS-2015M1013214

PATIENT

DRUGS (6)
  1. FLUOXETINE [Interacting]
     Active Substance: FLUOXETINE\FLUOXETINE HYDROCHLORIDE
     Dosage: 40 MG, QD
     Dates: start: 20090306, end: 20090324
  2. REMERGIL [Concomitant]
     Active Substance: MIRTAZAPINE
     Dosage: 7.5 MG, QD
     Dates: end: 20090305
  3. EDRONAX [Interacting]
     Active Substance: REBOXETINE MESYLATE
     Dosage: 4 DF, QD
     Dates: start: 20090224, end: 20090224
  4. FLUOXETINE [Suspect]
     Active Substance: FLUOXETINE\FLUOXETINE HYDROCHLORIDE
     Dosage: 60 MG, QD
     Dates: end: 20090305
  5. EDRONAX [Interacting]
     Active Substance: REBOXETINE MESYLATE
     Dosage: 2 DF, QD
     Dates: start: 20090219, end: 20090223
  6. EUTHYROX [Concomitant]
     Active Substance: LEVOTHYROXINE SODIUM
     Dosage: UNK

REACTIONS (2)
  - Ejaculation disorder [Recovered/Resolved]
  - Drug interaction [Unknown]

NARRATIVE: CASE EVENT DATE: 20090222
